FAERS Safety Report 16769959 (Version 1)
Quarter: 2019Q3

REPORT INFORMATION
  Report Type: Spontaneous
  Country: GB (occurrence: GB)
  Receive Date: 20190904
  Receipt Date: 20190904
  Transmission Date: 20191005
  Serious: Yes (Death)
  Sender: FDA-Public Use
  Company Number: GB-ROCHE-2394645

PATIENT
  Age: 62 Year
  Sex: Male

DRUGS (1)
  1. RITUXIMAB. [Suspect]
     Active Substance: RITUXIMAB
     Indication: NON-HODGKIN^S LYMPHOMA
     Dosage: UNKNOWN
     Route: 041
     Dates: start: 20190801, end: 20190801

REACTIONS (10)
  - Intraventricular haemorrhage [Fatal]
  - Hypertension [Fatal]
  - Hydrocephalus [Fatal]
  - Death [Fatal]
  - Pneumonia [Fatal]
  - Dizziness [Fatal]
  - Paraesthesia [Fatal]
  - Pupillary reflex impaired [Fatal]
  - Platelet count decreased [Fatal]
  - Atrial fibrillation [Fatal]

NARRATIVE: CASE EVENT DATE: 20190801
